FAERS Safety Report 10251090 (Version 1)
Quarter: 2014Q2

REPORT INFORMATION
  Report Type: Spontaneous
  Country: US (occurrence: US)
  Receive Date: 20140620
  Receipt Date: 20140620
  Transmission Date: 20141212
  Serious: Yes (Hospitalization)
  Sender: FDA-Public Use
  Company Number: US-ALKERMES INC.-ALK-2014-003086

PATIENT
  Sex: 0

DRUGS (2)
  1. VIVITROL [Suspect]
     Indication: ALCOHOLISM
     Dosage: 380 MG, UNK
     Route: 030
  2. VIVITROL [Suspect]
     Indication: DRUG DEPENDENCE

REACTIONS (4)
  - Hospitalisation [Unknown]
  - Traumatic liver injury [Unknown]
  - Dependence [Unknown]
  - Malaise [Unknown]
